FAERS Safety Report 8228938-8 (Version None)
Quarter: 2012Q1

REPORT INFORMATION
  Report Type: 
  Country: None (occurrence: None)
  Receive Date: 20120322
  Receipt Date: 20120314
  Transmission Date: 20120608
  Serious: Yes (Hospitalization)
  Sender: FDA-Public Use
  Company Number: SE-SANOFI-AVENTIS-2011SA052237

PATIENT
  Age: 60 Year
  Sex: Male

DRUGS (26)
  1. DALTEPARIN SODIUM [Concomitant]
     Dosage: DOSE:1500 UNIT(S)
     Dates: start: 20110711, end: 20110903
  2. HMG COA REDUCTASE INHIBITORS [Concomitant]
  3. PLATELET AGGREGATION INHIBITORS [Concomitant]
  4. FRAGMIN [Concomitant]
     Dates: start: 20110826, end: 20110903
  5. OMEPRAZOLE [Concomitant]
     Dates: start: 20110716, end: 20110903
  6. IMPORTAL [Concomitant]
     Dates: start: 20110726, end: 20110903
  7. PROPRANOLOL [Concomitant]
     Dates: start: 20110811, end: 20110827
  8. INSULATARD NPH HUMAN [Concomitant]
     Dates: start: 20110718, end: 20110903
  9. PRIMPERAN TAB [Concomitant]
     Dates: start: 20110812, end: 20110818
  10. HEPARIN [Concomitant]
     Dates: start: 20110824, end: 20110826
  11. CLOPIDOGREL BISULFATE [Suspect]
     Route: 065
     Dates: end: 20110903
  12. SODIUM PICOSULFATE [Concomitant]
     Dates: start: 20110712, end: 20110725
  13. NOVORAPID [Concomitant]
     Dates: start: 20110711, end: 20110719
  14. SPIRONOLACTONE [Concomitant]
     Dates: start: 20110713, end: 20110903
  15. OXYCONTIN [Concomitant]
     Dates: start: 20110711, end: 20110903
  16. ASPIRIN [Concomitant]
     Dates: end: 20110722
  17. BETA BLOCKING AGENTS [Concomitant]
  18. ANGIOTENSIN II ANTAGONISTS [Concomitant]
  19. METFORMIN HCL [Concomitant]
     Dates: end: 20110711
  20. MORPHINE [Concomitant]
     Dates: start: 20110830, end: 20110903
  21. ETHYLMORPHINE [Concomitant]
     Dates: start: 20110811, end: 20110817
  22. FUROSEMIDE [Concomitant]
     Dates: start: 20110822, end: 20110903
  23. LACTULOSE [Concomitant]
     Dates: start: 20110720, end: 20110725
  24. PRIMPERAN TAB [Concomitant]
     Dates: start: 20110823, end: 20110903
  25. NOSKAPIN [Concomitant]
     Dates: start: 20110813, end: 20110818
  26. FUROSEMIDE [Concomitant]
     Dates: start: 20110711

REACTIONS (7)
  - LIVER DISORDER [None]
  - CONSTIPATION [None]
  - COUGH [None]
  - PORTAL VEIN THROMBOSIS [None]
  - HAEMATURIA [None]
  - NAUSEA [None]
  - ASCITES [None]
